FAERS Safety Report 9108244 (Version 2)
Quarter: 2013Q2

REPORT INFORMATION
  Report Type: Spontaneous
  Country: DE (occurrence: DE)
  Receive Date: 20130222
  Receipt Date: 20130424
  Transmission Date: 20140414
  Serious: Yes (Death, Hospitalization, Other)
  Sender: FDA-Public Use
  Company Number: DE-AMGEN-DEUSP2013012258

PATIENT
  Age: 67 Year
  Sex: Female
  Weight: 71 kg

DRUGS (1)
  1. ENBREL [Suspect]
     Indication: RHEUMATOID ARTHRITIS
     Dosage: 25 MG, 2 TIMES/WK
     Route: 058
     Dates: start: 2004, end: 2013

REACTIONS (19)
  - Pulmonary embolism [Fatal]
  - Pelvic venous thrombosis [Fatal]
  - Cardiac hypertrophy [Fatal]
  - Arteriosclerosis coronary artery [Fatal]
  - Myopathy [Fatal]
  - Vertigo [Unknown]
  - Renal failure acute [Unknown]
  - Cough [Unknown]
  - Dyspnoea [Unknown]
  - Diarrhoea [Unknown]
  - Dehydration [Unknown]
  - Dizziness [Unknown]
  - Nausea [Unknown]
  - Vomiting [Unknown]
  - Decreased appetite [Unknown]
  - Weight decreased [Unknown]
  - Night sweats [Unknown]
  - Disseminated tuberculosis [Fatal]
  - Pyelonephritis [Unknown]
